FAERS Safety Report 13441996 (Version 2)
Quarter: 2017Q2

REPORT INFORMATION
  Report Type: Spontaneous
  Country: FR (occurrence: FR)
  Receive Date: 20170414
  Receipt Date: 20170424
  Transmission Date: 20170830
  Serious: Yes (Life-Threatening, Other)
  Sender: FDA-Public Use
  Company Number: FR-AUROBINDO-AUR-APL-2017-32782

PATIENT
  Age: 55 Year
  Sex: Male

DRUGS (2)
  1. AMOXICILLIN. [Suspect]
     Active Substance: AMOXICILLIN
     Indication: STREPTOCOCCAL INFECTION
     Dosage: UNK
     Route: 065
     Dates: start: 201307
  2. GENTAMICIN. [Suspect]
     Active Substance: GENTAMICIN
     Indication: STREPTOCOCCAL INFECTION
     Dosage: UNK
     Route: 065
     Dates: start: 201307

REACTIONS (2)
  - Septic shock [Unknown]
  - Drug ineffective [Unknown]

NARRATIVE: CASE EVENT DATE: 2013
